FAERS Safety Report 19124711 (Version 3)
Quarter: 2021Q2

REPORT INFORMATION
  Report Type: Spontaneous
  Country: IT (occurrence: IT)
  Receive Date: 20210413
  Receipt Date: 20210422
  Transmission Date: 20210717
  Serious: Yes (Hospitalization, Other)
  Sender: FDA-Public Use
  Company Number: IT-009507513-2104ITA001590

PATIENT
  Age: 63 Year
  Sex: Male

DRUGS (4)
  1. BCG?MEDAC [Suspect]
     Active Substance: BACILLUS CALMETTE-GUERIN ANTIGEN, UNSPECIFIED SUBSTRAIN
     Indication: BLADDER CANCER
     Dosage: INDUCTION CYCLE (ONE INSTILLATION WEEKLY FOR 6 WEEKS)
     Route: 043
     Dates: start: 2012
  2. BCG?MEDAC [Suspect]
     Active Substance: BACILLUS CALMETTE-GUERIN ANTIGEN, UNSPECIFIED SUBSTRAIN
     Dosage: MAINTENANCE (ONE INSTILLATION FOR 3 WEEKS ON MONTHS 3, 6, 12, 18, 24)
     Route: 043
     Dates: end: 2013
  3. BCG?MEDAC [Suspect]
     Active Substance: BACILLUS CALMETTE-GUERIN ANTIGEN, UNSPECIFIED SUBSTRAIN
     Dosage: 1 DOSAGE FORM, Q3W
     Route: 043
     Dates: start: 2017, end: 202001
  4. BCG?MEDAC [Suspect]
     Active Substance: BACILLUS CALMETTE-GUERIN ANTIGEN, UNSPECIFIED SUBSTRAIN
     Dosage: INSTILLATION AT WEEKLY INTERVALS
     Route: 043
     Dates: start: 202001

REACTIONS (2)
  - Hypersensitivity pneumonitis [Recovered/Resolved]
  - Chemical cystitis [Recovered/Resolved]

NARRATIVE: CASE EVENT DATE: 20200313
